FAERS Safety Report 12800540 (Version 1)
Quarter: 2016Q3

REPORT INFORMATION
  Report Type: Report from Study
  Country: NL (occurrence: NL)
  Receive Date: 20160930
  Receipt Date: 20160930
  Transmission Date: 20161109
  Serious: Yes (Hospitalization, Other)
  Sender: FDA-Public Use
  Company Number: NL-ABBVIE-16P-114-1587045-00

PATIENT
  Sex: Male
  Weight: 52.6 kg

DRUGS (2)
  1. DUODOPA [Suspect]
     Active Substance: CARBIDOPA\LEVODOPA
     Route: 050
     Dates: end: 2015
  2. DUODOPA [Suspect]
     Active Substance: CARBIDOPA\LEVODOPA
     Indication: PARKINSON^S DISEASE
     Dosage: MORNING DOSE 5, CONTUINUOUS DOSE 5.5, EXTRA DOSE 2, NIGHT DOSE 2.5
     Route: 050
     Dates: start: 20150806

REACTIONS (6)
  - Pneumonia aspiration [Recovered/Resolved]
  - Staphylococcal infection [Recovered/Resolved]
  - Apathy [Unknown]
  - Pulmonary embolism [Recovered/Resolved]
  - Ileus [Recovered/Resolved]
  - Off label use [Not Recovered/Not Resolved]

NARRATIVE: CASE EVENT DATE: 2015
